FAERS Safety Report 23258159 (Version 2)
Quarter: 2024Q2

REPORT INFORMATION
  Report Type: Report from Study
  Country: US (occurrence: US)
  Receive Date: 20231204
  Receipt Date: 20240417
  Transmission Date: 20240715
  Serious: No
  Sender: FDA-Public Use
  Company Number: US-ACADIA PHARMACEUTICALS INC.-ACA-2023-PIM-005209

PATIENT
  Age: 67 Year
  Sex: Male

DRUGS (26)
  1. NUPLAZID [Suspect]
     Active Substance: PIMAVANSERIN TARTRATE
     Indication: Hallucination
     Dosage: 34 MILLIGRAM, QD
     Route: 048
     Dates: start: 20230906, end: 20231018
  2. NUPLAZID [Suspect]
     Active Substance: PIMAVANSERIN TARTRATE
     Indication: Parkinson^s disease psychosis
     Dosage: 34 MILLIGRAM, QD
     Route: 048
  3. NUPLAZID [Suspect]
     Active Substance: PIMAVANSERIN TARTRATE
     Indication: Delusion
  4. CARBIDOPA\LEVODOPA [Concomitant]
     Active Substance: CARBIDOPA\LEVODOPA
     Dosage: ER 25/100
  5. DIVALPROEX SODIUM [Concomitant]
     Active Substance: DIVALPROEX SODIUM
     Dosage: DR 250
  6. MAGNESIUM [Concomitant]
     Active Substance: MAGNESIUM
     Dosage: 200
  7. MIRALAX [Concomitant]
     Active Substance: POLYETHYLENE GLYCOL 3350
     Dosage: 3350 UNK
  8. RASAGILINE [Concomitant]
     Active Substance: RASAGILINE\RASAGILINE MESYLATE
     Dosage: 1 MILLIGRAM
  9. RIVASTIGMINE [Concomitant]
     Active Substance: RIVASTIGMINE
     Dosage: 4.6MG/24HR
  10. VITAMIN B COMPLEX [Concomitant]
     Active Substance: CYANOCOBALAMIN\DEXPANTHENOL\NIACINAMIDE\PYRIDOXINE HYDROCHLORIDE\RIBOFLAVIN 5^-PHOSPHATE SODIUM\THIA
  11. TADALAFIL [Concomitant]
     Active Substance: TADALAFIL
     Dosage: 5 MILLIGRAM
  12. VITAMIN E-400 [Concomitant]
  13. ASCORBIC ACID [Concomitant]
     Active Substance: ASCORBIC ACID
  14. VITAMIN C [Concomitant]
     Active Substance: ASCORBIC ACID
  15. CHOLECALCIFEROL [Concomitant]
     Active Substance: CHOLECALCIFEROL
  16. VITAMIN D3 [Concomitant]
     Active Substance: CHOLECALCIFEROL
  17. COENZYME Q10 [Concomitant]
     Active Substance: DIETARY SUPPLEMENT\UBIDECARENONE
  18. DICYCLOMINE [Concomitant]
     Active Substance: DICYCLOMINE HYDROCHLORIDE
  19. DEPAKOTE [Concomitant]
     Active Substance: DIVALPROEX SODIUM
  20. MAGNESIUM OXIDE [Concomitant]
     Active Substance: MAGNESIUM OXIDE
  21. VITAMINS [Concomitant]
     Active Substance: VITAMINS
  22. FISH OIL [Concomitant]
     Active Substance: FISH OIL
  23. AZILECT [Concomitant]
     Active Substance: RASAGILINE MESYLATE
  24. EXELON [Concomitant]
     Active Substance: RIVASTIGMINE TARTRATE
  25. ZOCOR [Concomitant]
     Active Substance: SIMVASTATIN
  26. QUETIAPINE [Concomitant]
     Active Substance: QUETIAPINE

REACTIONS (13)
  - Screaming [Unknown]
  - Dizziness [Unknown]
  - Pallor [Unknown]
  - Balance disorder [Unknown]
  - Weight decreased [Unknown]
  - Fatigue [Unknown]
  - Delusion [Unknown]
  - Abnormal behaviour [Unknown]
  - Hallucination [Unknown]
  - Fall [Unknown]
  - Hallucinations, mixed [Unknown]
  - Confusional state [Unknown]
  - Drug ineffective [Unknown]

NARRATIVE: CASE EVENT DATE: 20231018
